FAERS Safety Report 5144868-2 (Version None)
Quarter: 2006Q4

REPORT INFORMATION
  Report Type: 
  Country: None (occurrence: None)
  Receive Date: 20061107
  Receipt Date: 20050616
  Transmission Date: 20070319
  Serious: Yes (Death, Hospitalization)
  Sender: FDA-Public Use
  Company Number: US-ELI_LILLY_AND_COMPANY-US_0506119314

PATIENT
  Age: 40 Year
  Sex: Male
  Weight: 81.632 kg

DRUGS (1)
  1. ZYPREXA [Suspect]
     Indication: DEPRESSION
     Dosage: UNK, UNKNOWN
     Dates: start: 20021010, end: 20040819

REACTIONS (4)
  - DEATH [None]
  - DIABETES MELLITUS [None]
  - PANCREATITIS [None]
  - WEIGHT DECREASED [None]
